FAERS Safety Report 9448074 (Version 4)
Quarter: 2014Q1

REPORT INFORMATION
  Report Type: Spontaneous
  Country: JP (occurrence: JP)
  Receive Date: 20130808
  Receipt Date: 20140328
  Transmission Date: 20141002
  Serious: Yes (Hospitalization, Other)
  Sender: FDA-Public Use
  Company Number: JP-JNJFOC-20130802148

PATIENT
  Age: 72 Year
  Sex: Female

DRUGS (10)
  1. REMICADE [Suspect]
     Indication: POLYMYALGIA RHEUMATICA
     Route: 042
     Dates: start: 20120725
  2. REMICADE [Suspect]
     Indication: POLYMYALGIA RHEUMATICA
     Dosage: SIXTH DOSE
     Route: 042
     Dates: start: 20121130
  3. REMICADE [Suspect]
     Indication: RHEUMATOID ARTHRITIS
     Route: 042
     Dates: start: 20120725
  4. REMICADE [Suspect]
     Indication: RHEUMATOID ARTHRITIS
     Dosage: SIXTH DOSE
     Route: 042
     Dates: start: 20121130
  5. PREDONINE [Suspect]
     Indication: RHEUMATOID ARTHRITIS
     Route: 048
     Dates: end: 20121214
  6. PREDONINE [Suspect]
     Indication: RHEUMATOID ARTHRITIS
     Route: 048
     Dates: start: 20120725
  7. METHOTREXATE [Suspect]
     Indication: RHEUMATOID ARTHRITIS
     Route: 048
     Dates: start: 20120725, end: 20121214
  8. FOLIAMIN [Concomitant]
     Route: 048
     Dates: end: 20121214
  9. BONALON [Concomitant]
     Route: 048
     Dates: end: 20121214
  10. EDIROL [Concomitant]
     Route: 048

REACTIONS (1)
  - Dermatomyositis [Recovered/Resolved]
